FAERS Safety Report 14104030 (Version 1)
Quarter: 2017Q4

REPORT INFORMATION
  Report Type: Spontaneous
  Country: FR (occurrence: FR)
  Receive Date: 20171018
  Receipt Date: 20171018
  Transmission Date: 20180321
  Serious: Yes (Death, Congenital Anomaly, Other)
  Sender: FDA-Public Use
  Company Number: FR-BAXTER-2017BAX035301

PATIENT
  Age: 38 Year
  Sex: Female

DRUGS (7)
  1. EMEND [Suspect]
     Active Substance: APREPITANT
     Indication: PROPHYLAXIS OF NAUSEA AND VOMITING
     Route: 065
  2. LEVOTHYROX [Suspect]
     Active Substance: LEVOTHYROXINE
     Indication: HYPOTHYROIDISM
     Route: 065
  3. EPIRUBICIN [Suspect]
     Active Substance: EPIRUBICIN
     Indication: BREAST CANCER
     Dosage: TOTAL 4 COURSES
     Route: 065
     Dates: start: 201701, end: 201703
  4. FLUOROURACIL. [Suspect]
     Active Substance: FLUOROURACIL
     Indication: BREAST CANCER
     Dosage: TOTAL 4 COURSES
     Route: 065
     Dates: start: 201701, end: 201703
  5. TAXOTERE [Suspect]
     Active Substance: DOCETAXEL
     Indication: BREAST CANCER
     Dosage: 1 COURSE PER WEEK
     Route: 065
     Dates: end: 201704
  6. KYTRIL [Suspect]
     Active Substance: GRANISETRON HYDROCHLORIDE
     Indication: PROPHYLAXIS OF NAUSEA AND VOMITING
     Route: 065
  7. ENDOXAN 1000 MG, POUDRE POUR SOLUTIONINJECTABLE [Suspect]
     Active Substance: CYCLOPHOSPHAMIDE
     Indication: BREAST CANCER
     Dosage: TOTAL 4 COURSES
     Route: 065
     Dates: start: 201701, end: 201703

REACTIONS (13)
  - Limb reduction defect [Fatal]
  - Retrognathia [Fatal]
  - Congenital central nervous system anomaly [Fatal]
  - Limb hypoplasia congenital [Fatal]
  - Abortion induced [Recovered/Resolved]
  - Micrognathia [Fatal]
  - Exposure during pregnancy [Recovered/Resolved]
  - Multiple congenital abnormalities [Fatal]
  - Hypotelorism of orbit [Fatal]
  - Foetal cardiac disorder [Fatal]
  - Syndactyly [Fatal]
  - Limb malformation [Fatal]
  - Hydrocephalus [Fatal]

NARRATIVE: CASE EVENT DATE: 20170413
